FAERS Safety Report 13608211 (Version 1)
Quarter: 2017Q2

REPORT INFORMATION
  Report Type: Spontaneous
  Country: GB (occurrence: GB)
  Receive Date: 20170602
  Receipt Date: 20170602
  Transmission Date: 20170830
  Serious: Yes (Other)
  Sender: FDA-Public Use
  Company Number: GB-MYLANLABS-2017M1032189

PATIENT

DRUGS (5)
  1. PARACETAMOL [Concomitant]
     Active Substance: ACETAMINOPHEN
     Indication: PAIN
     Dosage: TAKE 1 OR 2 4 TIMES/DAY
     Dates: start: 20170426
  2. LOSARTAN. [Suspect]
     Active Substance: LOSARTAN
     Dates: start: 20170517
  3. PARACETAMOL [Concomitant]
     Active Substance: ACETAMINOPHEN
     Indication: PAIN
     Dosage: TAKE 1 OR 2 4 TIMES/DAY
     Dates: start: 20160921, end: 20170426
  4. CLINITAS SOOTHE [Concomitant]
     Dates: start: 20160413
  5. HYPROMELLOSE [Concomitant]
     Active Substance: HYPROMELLOSES
     Dosage: IN THE AFFECTED EYE/S
     Route: 050
     Dates: start: 20150928

REACTIONS (1)
  - Memory impairment [Unknown]

NARRATIVE: CASE EVENT DATE: 20170517
